FAERS Safety Report 21789239 (Version 2)
Quarter: 2022Q4

REPORT INFORMATION
  Report Type: Report from Study
  Country: US (occurrence: US)
  Receive Date: 20221228
  Receipt Date: 20221229
  Transmission Date: 20230112
  Serious: No
  Sender: FDA-Public Use
  Company Number: US-ABBVIE-4246933

PATIENT
  Sex: Male
  Weight: 136 kg

DRUGS (1)
  1. HUMIRA [Suspect]
     Active Substance: ADALIMUMAB
     Indication: Psoriasis
     Dosage: ONSET DATE OF EVENT ONE PATCH ON BACK AND IN PRIVATE AREA/PATCH WAS MORE SENSITIVE/ ROUGH TO TOUC...
     Route: 058
     Dates: start: 20220316

REACTIONS (5)
  - Skin disorder [Recovering/Resolving]
  - Inflammation [Recovering/Resolving]
  - Dry skin [Recovering/Resolving]
  - Skin fissures [Recovering/Resolving]
  - Therapeutic product effect incomplete [Unknown]
